FAERS Safety Report 7819627-X (Version None)
Quarter: 2011Q4

REPORT INFORMATION
  Report Type: 
  Country: None (occurrence: None)
  Receive Date: 20111013
  Receipt Date: 20110930
  Transmission Date: 20120403
  Serious: Yes (Hospitalization)
  Sender: FDA-Public Use
  Company Number: 1000024525

PATIENT
  Age: 63 Year
  Sex: Male

DRUGS (3)
  1. ARICEPT [Concomitant]
  2. MEMANTINE [Suspect]
     Indication: DEMENTIA
     Dosage: 5 MG (5 MG,1 IN 1 D),ORAL
     Route: 048
     Dates: start: 20110705, end: 20110713
  3. MEMANTINE [Suspect]
     Indication: DEMENTIA ALZHEIMER'S TYPE
     Dosage: 5 MG (5 MG,1 IN 1 D),ORAL
     Route: 048
     Dates: start: 20110705, end: 20110713

REACTIONS (1)
  - GUILLAIN-BARRE SYNDROME [None]
